FAERS Safety Report 8833077 (Version 1)
Quarter: 2012Q4

REPORT INFORMATION
  Report Type: Report from Study
  Country: US (occurrence: US)
  Receive Date: 20121010
  Receipt Date: 20121010
  Transmission Date: 20130627
  Serious: Yes (Other)
  Sender: FDA-Public Use
  Company Number: US-JNJFOC-20121000837

PATIENT
  Age: 22 Year
  Sex: Female
  Weight: 40.37 kg

DRUGS (2)
  1. REMICADE [Suspect]
     Indication: CROHN^S DISEASE
     Route: 042
     Dates: start: 2012
  2. 6 MP [Concomitant]
     Indication: CROHN^S DISEASE
     Route: 065

REACTIONS (2)
  - Drug dependence [Not Recovered/Not Resolved]
  - Weight decreased [Not Recovered/Not Resolved]
